FAERS Safety Report 17483388 (Version 1)
Quarter: 2020Q1

REPORT INFORMATION
  Report Type: Spontaneous
  Country: US (occurrence: US)
  Receive Date: 20200229
  Receipt Date: 20200229
  Transmission Date: 20200409
  Serious: No
  Sender: FDA-Public Use
  Company Number: None

PATIENT
  Age: 20 Year
  Sex: Male
  Weight: 130.5 kg

DRUGS (2)
  1. FABIOR [Suspect]
     Active Substance: TAZAROTENE
     Indication: ACNE
     Dosage: ?          QUANTITY:50 50 GRAMS;?
     Route: 061
  2. VITAMIN [Concomitant]
     Active Substance: VITAMINS

REACTIONS (4)
  - Skin irritation [None]
  - Rash erythematous [None]
  - Skin exfoliation [None]
  - Skin burning sensation [None]

NARRATIVE: CASE EVENT DATE: 20200228
